FAERS Safety Report 5968609-1 (Version None)
Quarter: 2008Q4

REPORT INFORMATION
  Report Type: 
  Country: None (occurrence: None)
  Receive Date: 20081121
  Receipt Date: 20081121
  Transmission Date: 20090506
  Serious: Yes (Other)
  Sender: FDA-Public Use
  Company Number: None

PATIENT
  Age: 55 Year
  Sex: Female
  Weight: 78.0187 kg

DRUGS (2)
  1. TIZANIDINE HCL [Suspect]
     Indication: BACK PAIN
     Dosage: A SINGLE 4 MG TABLET AT NIGHT BUCCAL
     Route: 002
     Dates: start: 20080809, end: 20080924
  2. VOLTAREN [Concomitant]

REACTIONS (4)
  - MICTURITION URGENCY [None]
  - MUSCULAR WEAKNESS [None]
  - SOMNOLENCE [None]
  - URINARY INCONTINENCE [None]
